FAERS Safety Report 12625587 (Version 1)
Quarter: 2016Q3

REPORT INFORMATION
  Report Type: Spontaneous
  Country: JP (occurrence: JP)
  Receive Date: 20160805
  Receipt Date: 20160805
  Transmission Date: 20161109
  Serious: Yes (Hospitalization, Other)
  Sender: FDA-Public Use
  Company Number: JP-GLAXOSMITHKLINE-JP2016JPN053967

PATIENT
  Age: 78 Year
  Sex: Male
  Weight: 59 kg

DRUGS (11)
  1. TEGRETOL [Concomitant]
     Active Substance: CARBAMAZEPINE
     Indication: EPILEPSY
  2. ALLELOCK [Concomitant]
     Active Substance: OLOPATADINE HYDROCHLORIDE
     Indication: CELLULITIS
     Dosage: 5 MG, BID
     Dates: start: 2007
  3. SHOFUSAN [Concomitant]
     Indication: CELLULITIS
     Dosage: UNK
     Dates: start: 2007
  4. LAMICTAL [Suspect]
     Active Substance: LAMOTRIGINE
     Dosage: 100 MG, QD
     Route: 048
     Dates: start: 20160204, end: 20160330
  5. AMLODIPINE [Concomitant]
     Active Substance: AMLODIPINE BESYLATE
     Dosage: UNK
  6. LAMICTAL [Suspect]
     Active Substance: LAMOTRIGINE
     Indication: EPILEPSY
     Dosage: 25 MG, QOD
     Route: 048
     Dates: start: 20151224
  7. ROHYPNOL [Concomitant]
     Active Substance: FLUNITRAZEPAM
     Dosage: UNK
  8. FAMOTIDINE. [Concomitant]
     Active Substance: FAMOTIDINE
     Dosage: UNK
  9. CLOPIDOGREL SULFATE [Concomitant]
     Active Substance: CLOPIDOGREL BISULFATE
     Dosage: UNK
  10. MAGMITT [Concomitant]
     Active Substance: MAGNESIUM OXIDE
     Dosage: 330 MG, TID
  11. CINAL [Concomitant]
     Active Substance: ASCORBIC ACID\CALCIUM PANTOTHENATE
     Dosage: UNK

REACTIONS (13)
  - Effusion [Recovered/Resolved with Sequelae]
  - Pruritus generalised [Recovered/Resolved with Sequelae]
  - Eye discharge [Recovered/Resolved with Sequelae]
  - Blister [Recovered/Resolved]
  - Drug eruption [Recovered/Resolved with Sequelae]
  - Lip erosion [Recovered/Resolved with Sequelae]
  - Oral mucosa erosion [Recovered/Resolved]
  - Dermatitis [Recovered/Resolved]
  - Erythema of eyelid [Recovered/Resolved with Sequelae]
  - Skin erosion [Recovered/Resolved]
  - Stevens-Johnson syndrome [Recovered/Resolved]
  - Ocular hyperaemia [Recovered/Resolved]
  - Erythema [Recovered/Resolved]

NARRATIVE: CASE EVENT DATE: 2016
